FAERS Safety Report 6818552 (Version 9)
Quarter: 2012Q4

REPORT INFORMATION
  Report Type: 
  Country: JP (occurrence: JP)
  Receive Date: 20081121
  Receipt Date: 20120925
  Transmission Date: 20130627
  Serious: Yes (Hospitalization)
  Sender: FDA-Public Use
  Company Number: PHHY2008JP28199

PATIENT
  Age: 7 Year
  Sex: Female
  Weight: 26 kg

DRUGS (11)
  1. SANDIMMUN [Suspect]
     Indication: APLASTIC ANAEMIA
     Dosage: 60 mg, BID
     Route: 042
     Dates: start: 20080320, end: 20080422
  2. METHYLPREDNISOLONE [Concomitant]
     Indication: APLASTIC ANAEMIA
     Dosage: 40 mg, UNK
     Route: 065
     Dates: start: 20080421
  3. DECADRON [Concomitant]
     Indication: APLASTIC ANAEMIA
     Dosage: 1.6 mg, UNK
     Route: 042
     Dates: start: 20080320, end: 20080422
  4. ANTILYMPHOCYTE GLOBULIN [Concomitant]
     Indication: APLASTIC ANAEMIA
     Dosage: 280 mg, UNK
     Route: 042
     Dates: start: 20080421, end: 20080422
  5. G-CSF [Concomitant]
     Indication: APLASTIC ANAEMIA
  6. BLOOD TRANSFUSION [Concomitant]
     Indication: APLASTIC ANAEMIA
  7. ANTIBIOTICS [Concomitant]
     Indication: PNEUMONIA
  8. VFEND [Concomitant]
     Indication: FUNGAL INFECTION
     Dosage: 120 mg, UNK
     Route: 042
     Dates: start: 20080118, end: 20080510
  9. GRAN [Concomitant]
     Indication: NEUTROPHIL COUNT DECREASED
     Dosage: 300 ug, UNK
     Route: 042
     Dates: start: 20080320, end: 20080430
  10. GASTER [Concomitant]
     Indication: GASTRIC ULCER
     Dosage: 20 mg, UNK
     Route: 042
     Dates: start: 20080118
  11. FIRSTCIN [Concomitant]
     Indication: SEPSIS
     Dosage: 2 g, UNK
     Route: 042
     Dates: start: 20080118, end: 20080501

REACTIONS (11)
  - Cerebral vasoconstriction [Recovered/Resolved]
  - Cerebral haemorrhage [Recovered/Resolved]
  - Cerebral artery stenosis [Recovering/Resolving]
  - Posterior reversible encephalopathy syndrome [Recovered/Resolved]
  - Somnolence [Recovered/Resolved]
  - Loss of consciousness [Recovered/Resolved]
  - Hemianopia [Recovered/Resolved]
  - Headache [Recovered/Resolved]
  - Restlessness [Recovered/Resolved]
  - Hypertension [Recovered/Resolved]
  - Vision blurred [Recovered/Resolved]
